FAERS Safety Report 10663886 (Version 1)
Quarter: 2014Q4

REPORT INFORMATION
  Report Type: Spontaneous
  Country: US (occurrence: None)
  Receive Date: 20141217
  Receipt Date: 20141217
  Transmission Date: 20150529
  Serious: Yes (Hospitalization, Other)
  Sender: FDA-Public Use
  Company Number: 201412013

PATIENT
  Age: 55 Year
  Sex: Male

DRUGS (6)
  1. ANDROGEL [Suspect]
     Active Substance: TESTOSTERONE
     Indication: BLOOD TESTOSTERONE DECREASED
     Route: 061
  2. ANDROGEL [Suspect]
     Active Substance: TESTOSTERONE
     Indication: LIBIDO DECREASED
     Route: 061
  3. TESTIM [Suspect]
     Active Substance: TESTOSTERONE
     Indication: BLOOD TESTOSTERONE DECREASED
     Route: 062
  4. TESTIM [Suspect]
     Active Substance: TESTOSTERONE
     Indication: LIBIDO DECREASED
     Route: 062
  5. TESTOPEL [Suspect]
     Active Substance: TESTOSTERONE
     Indication: BLOOD TESTOSTERONE DECREASED
     Route: 058
  6. TESTOPEL [Suspect]
     Active Substance: TESTOSTERONE
     Indication: LIBIDO DECREASED
     Route: 058

REACTIONS (11)
  - Hypoaesthesia [None]
  - Coronary artery disease [None]
  - Economic problem [None]
  - Chest pain [None]
  - Vomiting [None]
  - Prescribed overdose [None]
  - Asthenia [None]
  - Nausea [None]
  - Blood pressure inadequately controlled [None]
  - Acute myocardial infarction [None]
  - Family stress [None]
